FAERS Safety Report 23990756 (Version 1)
Quarter: 2024Q2

REPORT INFORMATION
  Report Type: Spontaneous
  Country: DK (occurrence: DK)
  Receive Date: 20240619
  Receipt Date: 20240619
  Transmission Date: 20240716
  Serious: Yes (Hospitalization)
  Sender: FDA-Public Use
  Company Number: DK-Calliditas-2024CAL01033

PATIENT
  Age: 21 Year
  Sex: Male

DRUGS (2)
  1. BUDESONIDE [Suspect]
     Active Substance: BUDESONIDE
     Indication: Colitis ulcerative
     Dosage: 9MG DAILY; TARPEYO EXCLUDED AS DRUG (NOT COMPANY DRUG)
  2. VEDOLIZUMAB [Suspect]
     Active Substance: VEDOLIZUMAB
     Indication: Colitis ulcerative
     Dosage: 300MG INFUSION AT WEEKS 0, 2 AND 6

REACTIONS (1)
  - Pancreatitis acute [Unknown]
